FAERS Safety Report 20650127 (Version 1)
Quarter: 2022Q1

REPORT INFORMATION
  Report Type: Spontaneous
  Country: US (occurrence: US)
  Receive Date: 20220329
  Receipt Date: 20220329
  Transmission Date: 20220423
  Serious: No
  Sender: FDA-Public Use
  Company Number: US-AVEO ONCOLOGY-2022-AVEO-US000032

PATIENT

DRUGS (4)
  1. FOTIVDA [Suspect]
     Active Substance: TIVOZANIB HYDROCHLORIDE
     Indication: Renal cell carcinoma
     Dosage: 1.34 MG, DAILY FOR 21 DAYS THEN 7 DAYS OFF
     Route: 048
     Dates: start: 20220101
  2. ALLOPURINOL [Concomitant]
     Active Substance: ALLOPURINOL
  3. OXYCODONE [Concomitant]
     Active Substance: OXYCODONE
  4. TYLENOL EXTRA STRENGTH [Concomitant]
     Active Substance: ACETAMINOPHEN

REACTIONS (6)
  - Dysphonia [Unknown]
  - Blood pressure increased [Unknown]
  - Disease progression [Unknown]
  - Confusional state [Unknown]
  - Fungal skin infection [Unknown]
  - Nasopharyngitis [Unknown]
